FAERS Safety Report 21029063 (Version 1)
Quarter: 2022Q2

REPORT INFORMATION
  Report Type: Spontaneous
  Country: US (occurrence: US)
  Receive Date: 20220630
  Receipt Date: 20220630
  Transmission Date: 20220721
  Serious: No
  Sender: FDA-Public Use
  Company Number: US-LEO Pharma-343721

PATIENT
  Sex: Male

DRUGS (1)
  1. ADBRY [Suspect]
     Active Substance: TRALOKINUMAB-LDRM
     Indication: Product used for unknown indication

REACTIONS (5)
  - Dry skin [Unknown]
  - Swelling face [Recovered/Resolved]
  - Dry skin [Unknown]
  - Skin haemorrhage [Unknown]
  - Urticaria [Recovered/Resolved]
